FAERS Safety Report 8346236-9 (Version None)
Quarter: 2012Q1

REPORT INFORMATION
  Report Type: 
  Country: None (occurrence: None)
  Receive Date: 20120315
  Receipt Date: 20110517
  Transmission Date: 20120608
  Serious: No
  Sender: FDA-Public Use
  Company Number: PHHY2011US38538

PATIENT
  Age: 54 Year
  Sex: Female

DRUGS (5)
  1. HYDROCHLOROTHIAZIDE [Concomitant]
  2. MIRALAX [Concomitant]
  3. COLACE (DOCUSATE SODIUM) [Concomitant]
  4. BONIVA [Concomitant]
  5. GILENYA [Suspect]
     Indication: MULTIPLE SCLEROSIS
     Dosage: 0.5 MG, QD, ORAL
     Route: 048
     Dates: start: 20110318, end: 20110506

REACTIONS (3)
  - DECREASED APPETITE [None]
  - NAUSEA [None]
  - HEADACHE [None]
